FAERS Safety Report 10380361 (Version 1)
Quarter: 2014Q1

REPORT INFORMATION
  Report Type: Spontaneous
  Country: US (occurrence: None)
  Receive Date: 20140306
  Receipt Date: 20140306
  Transmission Date: 20141002
  Serious: Yes (Other)
  Sender: FDA-Public Use
  Company Number: 163-21880-13040808

PATIENT
  Age: 62 Year
  Sex: Female
  Weight: 65.77 kg

DRUGS (9)
  1. REVLIMID (LENALIDOMIDE) (10 MILLIGRAM, CAPSULES) [Suspect]
     Indication: PLASMA CELL MYELOMA
     Route: 048
     Dates: start: 20120101
  2. ACYCLOVIR (ACICLOVIR) [Concomitant]
  3. BIOTIN (BIOTIN) [Concomitant]
  4. CLONAZEPAM ( CLONAZEPAM) [Concomitant]
  5. OMEPRAZOLE (OMEPRAZOLE) [Concomitant]
  6. ZOLPIDEM  TARTRATE (ZOLPIDEM TARTRATE) [Concomitant]
  7. ONDANSETRON HCL (ONDANSETRON HYDROCHLORIDE) [Concomitant]
  8. ESTROGEL (ESTRADIOL) [Concomitant]
  9. LORAZEPAM (LORAZEPAM) [Concomitant]

REACTIONS (12)
  - Upper respiratory tract infection [None]
  - Rash [None]
  - Constipation [None]
  - Diarrhoea [None]
  - Upper-airway cough syndrome [None]
  - Depression [None]
  - Tearfulness [None]
  - Anxiety [None]
  - Inappropriate schedule of drug administration [None]
  - Blister [None]
  - Asthenia [None]
  - Fatigue [None]
